FAERS Safety Report 5716541-0 (Version None)
Quarter: 2008Q2

REPORT INFORMATION
  Report Type: 
  Country: None (occurrence: None)
  Receive Date: 20080424
  Receipt Date: 20080415
  Transmission Date: 20081010
  Serious: Yes (Hospitalization)
  Sender: FDA-Public Use
  Company Number: US-ELI_LILLY_AND_COMPANY-US200804004263

PATIENT
  Sex: Male

DRUGS (3)
  1. HUMULIN R [Suspect]
  2. LANTUS [Concomitant]
     Dosage: 50 U, UNK
  3. APIDRA [Concomitant]
     Dosage: 20 U, UNK

REACTIONS (1)
  - PULMONARY EMBOLISM [None]
